FAERS Safety Report 7938227-4 (Version None)
Quarter: 2011Q4

REPORT INFORMATION
  Report Type: 
  Country: None (occurrence: None)
  Receive Date: 20111123
  Receipt Date: 20111118
  Transmission Date: 20120403
  Serious: Yes (Hospitalization)
  Sender: FDA-Public Use
  Company Number: FR-ABBOTT-11P-056-0876144-00

PATIENT
  Age: 57 Year
  Sex: Male

DRUGS (6)
  1. KETAMINE HCL [Suspect]
     Indication: ANAESTHESIA
     Route: 042
     Dates: start: 20110914, end: 20110914
  2. MORPHINE [Suspect]
     Indication: ANAESTHESIA
     Route: 042
     Dates: start: 20110914, end: 20110914
  3. NIMBEX [Suspect]
     Indication: ANAESTHESIA
     Route: 042
     Dates: start: 20110914, end: 20110914
  4. SUFENTA PRESERVATIVE FREE [Suspect]
     Indication: ANAESTHESIA
     Route: 042
     Dates: start: 20110914, end: 20110914
  5. DIPRIVAN [Suspect]
     Indication: ANAESTHESIA
     Route: 042
     Dates: start: 20110914, end: 20110914
  6. SEVOFLURANE [Suspect]
     Indication: ANAESTHESIA
     Route: 055
     Dates: start: 20110914, end: 20110914

REACTIONS (1)
  - PANCREATITIS ACUTE [None]
